FAERS Safety Report 24913494 (Version 1)
Quarter: 2025Q1

REPORT INFORMATION
  Report Type: Spontaneous
  Country: US (occurrence: US)
  Receive Date: 20250201
  Receipt Date: 20250201
  Transmission Date: 20250409
  Serious: No
  Sender: ROCHE
  Company Number: US-ROCHE-10000195341

PATIENT
  Sex: Male

DRUGS (14)
  1. ZELBORAF [Suspect]
     Active Substance: VEMURAFENIB
     Indication: Anaemia
     Route: 065
  2. Amlodipine B [Concomitant]
  3. AMMONIUM LAC LOT [Concomitant]
  4. ATORVASTATIN [Concomitant]
     Active Substance: ATORVASTATIN
  5. CARVEDILOL [Concomitant]
     Active Substance: CARVEDILOL
  6. DOXYCYCLINE [Concomitant]
     Active Substance: DOXYCYCLINE
  7. HYDRALAZINE [Concomitant]
     Active Substance: HYDRALAZINE HYDROCHLORIDE
  8. HYDROCORTISO [Concomitant]
  9. JARDIANCE [Concomitant]
     Active Substance: EMPAGLIFLOZIN
  10. KETOCONAZOLE [Concomitant]
     Active Substance: KETOCONAZOLE
  11. LEVOTHYROXINE [Concomitant]
     Active Substance: LEVOTHYROXINE
  12. LISINOPRIL [Concomitant]
     Active Substance: LISINOPRIL
  13. METFORMIN HYDROCHLORIDE [Concomitant]
     Active Substance: METFORMIN HYDROCHLORIDE
  14. ASPIRIN [Concomitant]
     Active Substance: ASPIRIN

REACTIONS (2)
  - Off label use [Unknown]
  - No adverse event [Unknown]
